FAERS Safety Report 16741600 (Version 2)
Quarter: 2019Q3

REPORT INFORMATION
  Report Type: Spontaneous
  Country: BR (occurrence: BR)
  Receive Date: 20190826
  Receipt Date: 20190913
  Transmission Date: 20191005
  Serious: Yes (Other)
  Sender: FDA-Public Use
  Company Number: BR-ALLERGAN-1934398US

PATIENT
  Sex: Male

DRUGS (2)
  1. UNSPECIFIED TOPICAL HYPOTENSIVE DRUGS [Concomitant]
     Indication: PRODUCT USED FOR UNKNOWN INDICATION
     Dosage: UNK
     Route: 061
  2. OZURDEX [Suspect]
     Active Substance: DEXAMETHASONE
     Indication: DIABETIC RETINAL OEDEMA
     Dosage: 0.7 MG, SINGLE
     Route: 031
     Dates: start: 2018, end: 2018

REACTIONS (5)
  - Product administered at inappropriate site [Unknown]
  - Intraocular pressure increased [Recovered/Resolved]
  - Visual acuity reduced [Unknown]
  - Complication of device insertion [Not Recovered/Not Resolved]
  - Posterior capsule rupture [Recovered/Resolved]

NARRATIVE: CASE EVENT DATE: 2018
